FAERS Safety Report 17704686 (Version 1)
Quarter: 2020Q2

REPORT INFORMATION
  Report Type: Spontaneous
  Country: US (occurrence: US)
  Receive Date: 20200424
  Receipt Date: 20200424
  Transmission Date: 20200714
  Serious: No
  Sender: FDA-Public Use
  Company Number: US-SA-2020SA103279

PATIENT
  Sex: Male

DRUGS (1)
  1. ALLEGRA ALLERGY [Suspect]
     Active Substance: FEXOFENADINE HYDROCHLORIDE
     Indication: PRODUCTIVE COUGH
     Dosage: 180 MG, QD
     Route: 065
     Dates: start: 20200416

REACTIONS (2)
  - Off label use [Unknown]
  - Renal disorder [Unknown]
